FAERS Safety Report 7523189-4 (Version None)
Quarter: 2011Q2

REPORT INFORMATION
  Report Type: 
  Country: None (occurrence: None)
  Receive Date: 20110603
  Receipt Date: 20110525
  Transmission Date: 20111010
  Serious: Yes (Hospitalization)
  Sender: FDA-Public Use
  Company Number: IT-ELI_LILLY_AND_COMPANY-IT201105003241

PATIENT
  Sex: Male

DRUGS (3)
  1. HUMALOG [Suspect]
     Dosage: 26 IU, OTHER
     Route: 058
     Dates: start: 20110507, end: 20110507
  2. HUMALOG [Suspect]
     Indication: TYPE 1 DIABETES MELLITUS
     Dosage: 22 IU, QD
     Route: 058
     Dates: start: 20060507, end: 20110506
  3. LANTUS [Concomitant]
     Indication: TYPE 1 DIABETES MELLITUS
     Dosage: 18 IU, QD
     Dates: start: 20060507

REACTIONS (3)
  - CONFUSIONAL STATE [None]
  - OVERDOSE [None]
  - HYPOGLYCAEMIC UNCONSCIOUSNESS [None]
